FAERS Safety Report 13295621 (Version 2)
Quarter: 2017Q3

REPORT INFORMATION
  Report Type: Spontaneous
  Country: US (occurrence: US)
  Receive Date: 20170303
  Receipt Date: 20170914
  Transmission Date: 20171127
  Serious: No
  Sender: FDA-Public Use
  Company Number: US-LUNDBECK-DKLU2024801

PATIENT
  Sex: Female
  Weight: 60 kg

DRUGS (2)
  1. NORTHERA [Suspect]
     Active Substance: DROXIDOPA
     Indication: PRODUCT USED FOR UNKNOWN INDICATION
     Route: 065
     Dates: start: 20161205, end: 201612
  2. NORTHERA [Suspect]
     Active Substance: DROXIDOPA
     Dosage: SCHEDULE C TITRATING
     Route: 065
     Dates: start: 201612

REACTIONS (4)
  - Poor quality sleep [Recovered/Resolved]
  - Feeling jittery [Recovered/Resolved]
  - Panic reaction [Recovered/Resolved]
  - Back pain [Recovered/Resolved]
